FAERS Safety Report 24409888 (Version 1)
Quarter: 2024Q4

REPORT INFORMATION
  Report Type: Spontaneous
  Country: US (occurrence: US)
  Receive Date: 20241008
  Receipt Date: 20241008
  Transmission Date: 20250115
  Serious: Yes (Other)
  Sender: AMGEN
  Company Number: US-AMGEN-USASP2024194705

PATIENT

DRUGS (1)
  1. TEPROTUMUMAB [Suspect]
     Active Substance: TEPROTUMUMAB
     Indication: Endocrine ophthalmopathy
     Dosage: UNK
     Route: 042

REACTIONS (18)
  - Pulmonary embolism [Unknown]
  - Thrombosis [Unknown]
  - Urinary tract infection [Unknown]
  - Appetite disorder [Unknown]
  - Dry eye [Unknown]
  - Dry mouth [Unknown]
  - Abdominal discomfort [Unknown]
  - Dizziness [Unknown]
  - Weight increased [Unknown]
  - Weight decreased [Unknown]
  - Taste disorder [Unknown]
  - Onychoclasis [Unknown]
  - Muscle spasms [Unknown]
  - Alopecia [Unknown]
  - Fatigue [Unknown]
  - Hyperglycaemia [Unknown]
  - Tinnitus [Unknown]
  - Headache [Unknown]
